FAERS Safety Report 5765421-3 (Version None)
Quarter: 2008Q2

REPORT INFORMATION
  Report Type: 
  Country: None (occurrence: None)
  Receive Date: 20080611
  Receipt Date: 20080611
  Transmission Date: 20081010
  Serious: Yes (Other)
  Sender: FDA-Public Use
  Company Number: A0732392A

PATIENT

DRUGS (3)
  1. ALLI [Suspect]
     Indication: WEIGHT CONTROL
     Route: 048
  2. METHYLPREDNISOLONE [Concomitant]
  3. ZYRTEC-D 12 HOUR [Concomitant]

REACTIONS (3)
  - COAGULOPATHY [None]
  - CONTUSION [None]
  - VITAMIN K DEFICIENCY [None]
